FAERS Safety Report 9746671 (Version 1)
Quarter: 2013Q4

REPORT INFORMATION
  Report Type: Spontaneous
  Country: IT (occurrence: FR)
  Receive Date: 20131211
  Receipt Date: 20131211
  Transmission Date: 20140711
  Serious: Yes (Hospitalization)
  Sender: FDA-Public Use
  Company Number: FR-FRI-1000052152

PATIENT
  Age: 62 Year
  Sex: Male

DRUGS (1)
  1. NEBIVOLOL [Suspect]
     Dates: start: 201307, end: 20131019

REACTIONS (3)
  - Dermatitis exfoliative [Recovering/Resolving]
  - Psoriasis [Recovered/Resolved]
  - Palmoplantar keratoderma [Unknown]
